FAERS Safety Report 23124742 (Version 1)
Quarter: 2023Q4

REPORT INFORMATION
  Report Type: Spontaneous
  Country: US (occurrence: US)
  Receive Date: 20231030
  Receipt Date: 20231030
  Transmission Date: 20240109
  Serious: No
  Sender: FDA-Public Use
  Company Number: US-Nobelpharma America, LLC-NPA-2023-02092

PATIENT
  Sex: Female

DRUGS (12)
  1. HYFTOR [Suspect]
     Active Substance: SIROLIMUS
     Dosage: APPLY A THIN LAYER OF GEL TOPICALLY TO AFFECTED AREA TWICE DAILY FOR 12 WEEKS
     Dates: start: 20230919
  2. ATORVASTATIN [Concomitant]
     Active Substance: ATORVASTATIN
  3. CYANOCOBALAMIN [Concomitant]
     Active Substance: CYANOCOBALAMIN
  4. FLUCONAZOLE [Concomitant]
     Active Substance: FLUCONAZOLE
  5. GLIMEPIRIDE [Concomitant]
     Active Substance: GLIMEPIRIDE
  6. LAMOTRIGINE [Concomitant]
     Active Substance: LAMOTRIGINE
  7. LISINOPRIL [Concomitant]
     Active Substance: LISINOPRIL
  8. METFORMIN [Concomitant]
     Active Substance: METFORMIN HYDROCHLORIDE
     Dosage: EXTENDED RELEASE
  9. MINOXIDIL [Concomitant]
     Active Substance: MINOXIDIL
  10. OXYCODONE [Concomitant]
     Active Substance: OXYCODONE
  11. REXULTI [Concomitant]
     Active Substance: BREXPIPRAZOLE
  12. TRULICITY [Concomitant]
     Active Substance: DULAGLUTIDE
     Dosage: 1.5/0.5

REACTIONS (2)
  - Rash [Unknown]
  - Product dose omission issue [None]
